FAERS Safety Report 4726448-3 (Version None)
Quarter: 2005Q3

REPORT INFORMATION
  Report Type: 
  Country: None (occurrence: None)
  Receive Date: 20050725
  Receipt Date: 20050509
  Transmission Date: 20060218
  Serious: No
  Sender: FDA-Public Use
  Company Number: USA050597701

PATIENT
  Age: 11 Year
  Sex: Male
  Weight: 68 kg

DRUGS (2)
  1. STRATTERA [Suspect]
     Dosage: 80 MG DAY
     Dates: start: 20050401
  2. ANTIHISTAMINE [Concomitant]

REACTIONS (2)
  - FLATULENCE [None]
  - HYPERTENSION [None]
